FAERS Safety Report 8255635-5 (Version None)
Quarter: 2012Q2

REPORT INFORMATION
  Report Type: 
  Country: None (occurrence: None)
  Receive Date: 20120403
  Receipt Date: 20120324
  Transmission Date: 20120825
  Serious: Yes (Other)
  Sender: FDA-Public Use
  Company Number: PHEH2012US006950

PATIENT
  Age: 84 Year
  Sex: Female

DRUGS (1)
  1. EXELON [Suspect]
     Dosage: UNK UKN, UNK
     Route: 062

REACTIONS (3)
  - DEMENTIA ALZHEIMER'S TYPE [None]
  - ACTIVITIES OF DAILY LIVING IMPAIRED [None]
  - CEREBROVASCULAR ACCIDENT [None]
